FAERS Safety Report 20510943 (Version 1)
Quarter: 2022Q1

REPORT INFORMATION
  Report Type: Spontaneous
  Country: US (occurrence: US)
  Receive Date: 20220224
  Receipt Date: 20220224
  Transmission Date: 20220423
  Serious: Yes (Life-Threatening, Hospitalization)
  Sender: FDA-Public Use
  Company Number: US-STRIDES ARCOLAB LIMITED-2022SP001737

PATIENT
  Age: 2 Year
  Sex: Male

DRUGS (4)
  1. DEXAMETHASONE [Suspect]
     Active Substance: DEXAMETHASONE
     Indication: Acute lymphocytic leukaemia
     Dosage: UNK, SINGLE (INDUCTION CHEMOTHERAPY)
     Route: 065
  2. DEXAMETHASONE [Suspect]
     Active Substance: DEXAMETHASONE
     Indication: B-cell type acute leukaemia
  3. VINCRISTINE [Suspect]
     Active Substance: VINCRISTINE
     Indication: Acute lymphocytic leukaemia
     Dosage: UNK, SINGLE (INDUCTION CHEMOTHERAPY)
     Route: 065
  4. VINCRISTINE [Suspect]
     Active Substance: VINCRISTINE
     Indication: B-cell type acute leukaemia

REACTIONS (7)
  - Neutropenic colitis [Recovered/Resolved]
  - Coagulopathy [Recovered/Resolved]
  - Haemodynamic instability [Recovered/Resolved]
  - Clostridial sepsis [Recovered/Resolved]
  - Clostridium difficile infection [Recovered/Resolved]
  - Large intestine perforation [Recovered/Resolved]
  - Abdominal distension [Recovered/Resolved]
